FAERS Safety Report 4549832-X (Version None)
Quarter: 2004Q4

REPORT INFORMATION
  Report Type: 
  Country: None (occurrence: None)
  Receive Date: 20041227
  Receipt Date: 20041027
  Transmission Date: 20050328
  Serious: No
  Sender: FDA-Public Use
  Company Number: 04P-163-0278872-00

PATIENT
  Age: 64 Year
  Sex: Female
  Weight: 70.3075 kg

DRUGS (13)
  1. HUMIRA [Suspect]
     Indication: RHEUMATOID ARTHRITIS
     Dosage: 40 MG, 1 IN 1 WK, SUBCUTANEOUS
     Route: 058
     Dates: start: 20041011
  2. PREDNISONE [Concomitant]
  3. VERAPAMIL [Concomitant]
  4. VENLAFAXINE HCL [Concomitant]
  5. METAXALONE [Concomitant]
  6. LEVOTHYROXINE [Concomitant]
  7. LORATADINE [Concomitant]
  8. TRIAZOLAM [Concomitant]
  9. DESIPRAMIDE [Concomitant]
  10. METHADONE HCL [Concomitant]
  11. HYDROCODONE [Concomitant]
  12. CALCIUM GLUCONATE [Concomitant]
  13. MULTIVITAMIN [Concomitant]

REACTIONS (1)
  - NASOPHARYNGITIS [None]
